FAERS Safety Report 17604038 (Version 1)
Quarter: 2020Q1

REPORT INFORMATION
  Report Type: Spontaneous
  Country: US (occurrence: US)
  Receive Date: 20200331
  Receipt Date: 20200331
  Transmission Date: 20200409
  Serious: No
  Sender: FDA-Public Use
  Company Number: US-JNJFOC-20200344760

PATIENT
  Sex: Male

DRUGS (9)
  1. OXYBUTYNIN CHLORIDE. [Concomitant]
     Active Substance: OXYBUTYNIN CHLORIDE
  2. PREDNISONE. [Concomitant]
     Active Substance: PREDNISONE
  3. FIRMAGON [Concomitant]
     Active Substance: DEGARELIX ACETATE
  4. SIPULEUCEL-T [Concomitant]
     Active Substance: SIPULEUCEL-T
  5. CALCIUM/VITAMIN D3 [Concomitant]
  6. XGEVA [Concomitant]
     Active Substance: DENOSUMAB
  7. ZYTIGA [Suspect]
     Active Substance: ABIRATERONE ACETATE
     Indication: PRODUCT USED FOR UNKNOWN INDICATION
     Route: 048
  8. TYLENOL [Concomitant]
     Active Substance: ACETAMINOPHEN
  9. NEXIUM [Concomitant]
     Active Substance: ESOMEPRAZOLE MAGNESIUM

REACTIONS (1)
  - Weight decreased [Unknown]
